FAERS Safety Report 6255121-8 (Version None)
Quarter: 2009Q2

REPORT INFORMATION
  Report Type: 
  Country: None (occurrence: None)
  Receive Date: 20090630
  Receipt Date: 20090615
  Transmission Date: 20091009
  Serious: Yes (Hospitalization)
  Sender: FDA-Public Use
  Company Number: 2009001605

PATIENT

DRUGS (3)
  1. ERLOTINIB (ERLOTINIB) (TABLET) (ERLOTINIB) [Suspect]
     Indication: NON-SMALL CELL LUNG CANCER
     Dates: start: 20090507
  2. CISPLATIN [Suspect]
     Indication: NON-SMALL CELL LUNG CANCER
     Dosage: INTRAVENOUS
     Route: 042
     Dates: start: 20090507
  3. GEMCITABINE [Suspect]
     Indication: NON-SMALL CELL LUNG CANCER
     Dosage: INTRAVENOUS
     Route: 042
     Dates: start: 20090507

REACTIONS (7)
  - BACK PAIN [None]
  - GROIN PAIN [None]
  - LEUKOPENIA [None]
  - MUSCULAR WEAKNESS [None]
  - NEUTROPENIA [None]
  - PAIN IN EXTREMITY [None]
  - THROMBOCYTOPENIA [None]
